FAERS Safety Report 6559197-X (Version None)
Quarter: 2010Q1

REPORT INFORMATION
  Report Type: 
  Country: None (occurrence: None)
  Receive Date: 20100129
  Receipt Date: 20090922
  Transmission Date: 20100710
  Serious: No
  Sender: FDA-Public Use
  Company Number: US-ABBOTT-07P-163-0422421-00

PATIENT
  Sex: Female
  Weight: 83.99 kg

DRUGS (4)
  1. HUMIRA [Suspect]
     Indication: CROHN'S DISEASE
     Dates: start: 20070801, end: 20070801
  2. HUMIRA [Suspect]
     Indication: ANKYLOSING SPONDYLITIS
  3. HUMIRA [Suspect]
     Dates: end: 20071016
  4. MESALAMIN [Concomitant]
     Indication: CROHN'S DISEASE

REACTIONS (6)
  - BACK PAIN [None]
  - CROHN'S DISEASE [None]
  - INCORRECT DRUG ADMINISTRATION DURATION [None]
  - NASAL CONGESTION [None]
  - ORAL HERPES [None]
  - RHINORRHOEA [None]
